FAERS Safety Report 11588962 (Version 10)
Quarter: 2016Q1

REPORT INFORMATION
  Report Type: Spontaneous
  Country: US (occurrence: US)
  Receive Date: 20151002
  Receipt Date: 20160203
  Transmission Date: 20160525
  Serious: Yes (Hospitalization, Other)
  Sender: FDA-Public Use
  Company Number: US-PFIZER INC-2015315560

PATIENT
  Age: 83 Year
  Sex: Male
  Weight: 99 kg

DRUGS (12)
  1. SUTENT [Suspect]
     Active Substance: SUNITINIB MALATE
     Dosage: 50 MG, CYCLIC (28 DAYS ON/14 DAYS OFF)
     Dates: start: 20151030, end: 20151108
  2. ACIDOPHILUS [Concomitant]
     Active Substance: LACTOBACILLUS ACIDOPHILUS
     Dosage: UNK
  3. BIOFLEX [Concomitant]
     Active Substance: GLUCOSAMINE SULFATE
     Dosage: UNK
  4. LISINOPRIL. [Concomitant]
     Active Substance: LISINOPRIL
  5. ALLOPURINOL. [Concomitant]
     Active Substance: ALLOPURINOL
     Dosage: UNK
  6. LASIX [Concomitant]
     Active Substance: FUROSEMIDE
     Dosage: UNK
  7. MAGNESIUM [Concomitant]
     Active Substance: MAGNESIUM
     Dosage: UNK
  8. BABY ASPIRIN [Concomitant]
     Active Substance: ASPIRIN
     Dosage: UNK
  9. SUTENT [Suspect]
     Active Substance: SUNITINIB MALATE
     Indication: RENAL CANCER STAGE IV
     Dosage: 50 MG, DAILY
     Dates: start: 20150601, end: 20150614
  10. TOPROL XL [Concomitant]
     Active Substance: METOPROLOL SUCCINATE
     Dosage: UNK
  11. COUMADINE [Concomitant]
     Active Substance: WARFARIN SODIUM
     Dosage: UNK
  12. FLUOXETINE HCL [Concomitant]
     Active Substance: FLUOXETINE HYDROCHLORIDE
     Dosage: UNK

REACTIONS (22)
  - Cystitis [Unknown]
  - Fall [Unknown]
  - Urinary tract infection [Unknown]
  - Asthenia [Recovering/Resolving]
  - Impaired driving ability [Recovered/Resolved]
  - Feeling abnormal [Recovering/Resolving]
  - Anaemia [Unknown]
  - Renal failure [Not Recovered/Not Resolved]
  - Tooth disorder [Unknown]
  - Skin lesion [Recovering/Resolving]
  - Sepsis [Not Recovered/Not Resolved]
  - Pulmonary oedema [Not Recovered/Not Resolved]
  - Vision blurred [Unknown]
  - Glossodynia [Recovered/Resolved]
  - Epistaxis [Unknown]
  - Dehydration [Unknown]
  - Productive cough [Unknown]
  - Malaise [Not Recovered/Not Resolved]
  - Back pain [Not Recovered/Not Resolved]
  - Tremor [Not Recovered/Not Resolved]
  - Movement disorder [Unknown]
  - Chills [Unknown]

NARRATIVE: CASE EVENT DATE: 2015
